FAERS Safety Report 17952282 (Version 1)
Quarter: 2020Q2

REPORT INFORMATION
  Report Type: Spontaneous
  Country: US (occurrence: US)
  Receive Date: 20200626
  Receipt Date: 20200626
  Transmission Date: 20200714
  Serious: No
  Sender: FDA-Public Use
  Company Number: US-B.I. PHARMACEUTICALS,INC./RIDGEFIELD-2020-BI-031148

PATIENT
  Age: 85 Year
  Sex: Female

DRUGS (7)
  1. MOBIC [Suspect]
     Active Substance: MELOXICAM
     Indication: ARTHRALGIA
     Route: 065
  2. ARMOUR THYROID [Concomitant]
     Active Substance: THYROID, PORCINE
     Route: 048
  3. MOBIC [Suspect]
     Active Substance: MELOXICAM
     Indication: INFLAMMATION
  4. ARMOUR THYROID [Concomitant]
     Active Substance: THYROID, PORCINE
     Route: 048
  5. PLAQUENIL [HYDROXYCHLOROQUINE PHOSPHATE] [Concomitant]
     Active Substance: HYDROXYCHLOROQUINE DIPHOSPHATE
     Indication: ARTHRITIS
     Route: 065
     Dates: start: 2019, end: 2020
  6. ARMOUR THYROID [Concomitant]
     Active Substance: THYROID, PORCINE
     Indication: HYPOTHYROIDISM
     Route: 048
     Dates: start: 2010
  7. ARMOUR THYROID [Concomitant]
     Active Substance: THYROID, PORCINE
     Route: 048

REACTIONS (2)
  - Pain [Unknown]
  - Vision blurred [Unknown]
